FAERS Safety Report 20119413 (Version 7)
Quarter: 2023Q1

REPORT INFORMATION
  Report Type: Report from Study
  Country: JP (occurrence: JP)
  Receive Date: 20211126
  Receipt Date: 20230208
  Transmission Date: 20230417
  Serious: Yes (Other)
  Sender: FDA-Public Use
  Company Number: JP-TAKEDA-2021TJP096615

PATIENT
  Sex: Male

DRUGS (10)
  1. LEUPROLIDE ACETATE [Suspect]
     Active Substance: LEUPROLIDE ACETATE
     Indication: Bulbospinal muscular atrophy congenital
     Dosage: 11.25 MILLIGRAM, Q3MONTHS
     Route: 058
     Dates: start: 20171027
  2. METHYLCOBALAMIN [Concomitant]
     Active Substance: METHYLCOBALAMIN
     Indication: Bulbospinal muscular atrophy congenital
     Dosage: 1500 MICROGRAM
     Route: 065
  3. HERBALS [Concomitant]
     Active Substance: HERBALS
     Indication: Central obesity
     Dosage: 5 GRAM
     Route: 065
     Dates: start: 20190104, end: 20200701
  4. CARBOCYSTEINE [Concomitant]
     Active Substance: CARBOCYSTEINE
     Indication: Upper respiratory tract inflammation
     Dosage: 1500 MILLIGRAM
     Route: 065
     Dates: end: 20181024
  5. LANSOPRAZOLE [Concomitant]
     Active Substance: LANSOPRAZOLE
     Indication: Gastrooesophageal reflux disease
     Dosage: 30 MILLIGRAM
     Route: 065
     Dates: end: 20180130
  6. AMBROXOL HYDROCHLORIDE [Concomitant]
     Active Substance: AMBROXOL HYDROCHLORIDE
     Indication: Product used for unknown indication
     Dosage: 45 MILLIGRAM
     Route: 065
     Dates: start: 20181227
  7. HERBALS [Concomitant]
     Active Substance: HERBALS
     Indication: Bulbospinal muscular atrophy congenital
     Dosage: 5 GRAM
     Route: 065
     Dates: start: 20190104, end: 20200701
  8. JUVELA [Concomitant]
     Active Substance: .ALPHA.-TOCOPHEROL\RETINOL
     Indication: Bulbospinal muscular atrophy congenital
     Dosage: 150 MILLIGRAM
     Route: 065
     Dates: start: 20190405
  9. MAGNESIUM OXIDE [Concomitant]
     Active Substance: MAGNESIUM OXIDE
     Indication: Constipation
     Dosage: 500 MILLIGRAM
     Route: 065
     Dates: start: 20210609
  10. HERBALS [Concomitant]
     Active Substance: HERBALS
     Indication: Bulbospinal muscular atrophy congenital
     Dosage: 5 GRAM
     Route: 065
     Dates: start: 20221130

REACTIONS (1)
  - Erectile dysfunction [Not Recovered/Not Resolved]
